FAERS Safety Report 22101504 (Version 3)
Quarter: 2023Q1

REPORT INFORMATION
  Report Type: Other
  Country: US (occurrence: None)
  Receive Date: 20230316
  Receipt Date: 20230327
  Transmission Date: 20230418
  Serious: No
  Sender: FDA-Public Use
  Company Number: US-ROCHE-2271157

PATIENT
  Sex: Male

DRUGS (1)
  1. CELLCEPT [Suspect]
     Active Substance: MYCOPHENOLATE MOFETIL
     Indication: Orbital granuloma
     Dosage: 1000MG BID
     Route: 048

REACTIONS (4)
  - Off label use [Unknown]
  - Incorrect dose administered [Unknown]
  - Product prescribing error [Unknown]
  - No adverse event [Unknown]
